FAERS Safety Report 6006814-9 (Version None)
Quarter: 2008Q4

REPORT INFORMATION
  Report Type: 
  Country: None (occurrence: None)
  Receive Date: 20081217
  Receipt Date: 20080825
  Transmission Date: 20090506
  Serious: No
  Sender: FDA-Public Use
  Company Number: US-ASTRAZENECA-2007UW20009

PATIENT
  Age: 73 Year
  Sex: Female
  Weight: 81.2 kg

DRUGS (7)
  1. CRESTOR [Suspect]
     Indication: BLOOD CHOLESTEROL INCREASED
     Route: 048
     Dates: start: 20080101
  2. ALPRAZOLAM [Concomitant]
     Indication: NERVOUSNESS
     Dosage: AS NEEDED
  3. ADVIL LIQUI-GELS [Concomitant]
  4. METOPROLOL TARTRATE [Concomitant]
  5. ALEVE [Concomitant]
  6. OMEPRAZOLE [Concomitant]
     Route: 048
  7. TYLENOL (CAPLET) [Concomitant]

REACTIONS (6)
  - ABASIA [None]
  - BLOOD CHOLESTEROL INCREASED [None]
  - BLOOD PRESSURE INCREASED [None]
  - BLOOD TRIGLYCERIDES INCREASED [None]
  - MYALGIA [None]
  - PAIN [None]
